FAERS Safety Report 20974399 (Version 1)
Quarter: 2022Q2

REPORT INFORMATION
  Report Type: Report from Study
  Country: NL (occurrence: None)
  Receive Date: 20220617
  Receipt Date: 20220617
  Transmission Date: 20220720
  Serious: Yes (Hospitalization)
  Sender: FDA-Public Use
  Company Number: NL-ROCHE-3115343

PATIENT
  Age: 70 Year
  Sex: Male

DRUGS (5)
  1. ATEZOLIZUMAB [Suspect]
     Active Substance: ATEZOLIZUMAB
     Indication: Non-small cell lung cancer stage IV
     Dosage: ON 27/MAY/2022, THE MOST RECENT DOSE OF STUDY DRUG WAS ADMINISTERED.?4 CYCLES
     Route: 041
     Dates: start: 20220318
  2. BEVACIZUMAB [Suspect]
     Active Substance: BEVACIZUMAB
     Indication: Non-small cell lung cancer stage IV
     Dosage: ON 27/MAY/2022, THE MOST RECENT DOSE OF STUDY DRUG WAS ADMINISTERED.
     Route: 042
     Dates: start: 20220318
  3. PACLITAXEL [Suspect]
     Active Substance: PACLITAXEL
     Indication: Non-small cell lung cancer stage IV
     Dosage: ON 27/MAY/2022, THE MOST RECENT DOSE OF STUDY DRUG WAS ADMINISTERED.
     Route: 042
     Dates: start: 20220318
  4. CARBOPLATIN [Suspect]
     Active Substance: CARBOPLATIN
     Indication: Non-small cell lung cancer stage IV
     Dosage: ON 27/MAY/2022, THE MOST RECENT DOSE OF STUDY DRUG WAS ADMINISTERED.
     Route: 042
     Dates: start: 20220318
  5. RIVAROXABAN [Concomitant]
     Active Substance: RIVAROXABAN

REACTIONS (1)
  - Sepsis [Not Recovered/Not Resolved]

NARRATIVE: CASE EVENT DATE: 20220604
